FAERS Safety Report 25169038 (Version 1)
Quarter: 2025Q2

REPORT INFORMATION
  Report Type: Spontaneous
  Country: US (occurrence: US)
  Receive Date: 20250407
  Receipt Date: 20250407
  Transmission Date: 20250716
  Serious: Yes (Hospitalization)
  Sender: PFIZER
  Company Number: US-PFIZER INC-PV202500029593

PATIENT
  Age: 79 Year
  Sex: Female

DRUGS (5)
  1. TUKYSA [Suspect]
     Active Substance: TUCATINIB
     Dosage: 150MG; 2 TABLETS TWICE DAILY (NO BREAKS IN TREATMENT)
  2. TUKYSA [Suspect]
     Active Substance: TUCATINIB
     Route: 048
  3. ELIQUIS [Concomitant]
     Active Substance: APIXABAN
  4. CAPECITABINE [Concomitant]
     Active Substance: CAPECITABINE
  5. HERCEPTIN [Concomitant]
     Active Substance: TRASTUZUMAB

REACTIONS (2)
  - Infection [Unknown]
  - Off label use [Unknown]
